FAERS Safety Report 14726706 (Version 1)
Quarter: 2018Q2

REPORT INFORMATION
  Report Type: Spontaneous
  Country: US (occurrence: US)
  Receive Date: 20180406
  Receipt Date: 20180406
  Transmission Date: 20180711
  Serious: No
  Sender: FDA-Public Use
  Company Number: US-BAYER-2018-066361

PATIENT
  Age: 9 Year
  Sex: Female

DRUGS (2)
  1. CLARITIN [Suspect]
     Active Substance: LORATADINE
     Indication: SEASONAL ALLERGY
     Dosage: 10 ML, ONCE (BID)
     Dates: start: 20180304, end: 20180304
  2. CLARITIN [Suspect]
     Active Substance: LORATADINE
     Indication: SEASONAL ALLERGY
     Dosage: 10 ML, QD
     Dates: start: 20180304

REACTIONS (2)
  - Extra dose administered [Recovered/Resolved]
  - Failure of child resistant mechanism for pharmaceutical product [Recovered/Resolved]

NARRATIVE: CASE EVENT DATE: 20180403
